FAERS Safety Report 21571307 (Version 3)
Quarter: 2022Q4

REPORT INFORMATION
  Report Type: Report from Study
  Country: AE (occurrence: AE)
  Receive Date: 20221109
  Receipt Date: 20221121
  Transmission Date: 20230113
  Serious: Yes (Life-Threatening, Hospitalization, Disabling, Other)
  Sender: FDA-Public Use
  Company Number: AE-ALNYLAM PHARMACEUTICALS, INC.-ALN-2022-003122

PATIENT

DRUGS (20)
  1. LUMASIRAN [Suspect]
     Active Substance: LUMASIRAN
     Indication: Primary hyperoxaluria
     Dosage: 6 MILLIGRAM/KILOGRAM
     Route: 058
     Dates: start: 20221102
  2. LUMASIRAN [Suspect]
     Active Substance: LUMASIRAN
     Dosage: 6 MILLIGRAM/KILOGRAM
     Route: 058
     Dates: start: 20200728, end: 20200922
  3. LUMASIRAN [Suspect]
     Active Substance: LUMASIRAN
     Dosage: 3 MILLIGRAM/KILOGRAM
     Route: 058
     Dates: start: 20201020, end: 20210316
  4. LUMASIRAN [Suspect]
     Active Substance: LUMASIRAN
     Dosage: 6 MILLIGRAM/KILOGRAM
     Route: 058
     Dates: start: 20210406
  5. LUMASIRAN [Suspect]
     Active Substance: LUMASIRAN
     Dosage: 6 MILLIGRAM/KILOGRAM
     Route: 058
     Dates: start: 20220810
  6. ALTEPLASE [Concomitant]
     Active Substance: ALTEPLASE
     Indication: Prophylaxis
     Dosage: 1.2 MILLIGRAM, PRN
     Route: 042
     Dates: start: 20191106
  7. HEPARIN SODIUM [Concomitant]
     Active Substance: HEPARIN SODIUM
     Indication: Haemodialysis
     Dosage: 1600 INTERNATIONAL UNIT, TID
     Route: 042
     Dates: start: 20191106
  8. MUPIROCIN [Concomitant]
     Active Substance: MUPIROCIN
     Indication: Prophylaxis
     Dosage: 1 APPLICATION, THREE TIMES PER WEEK
     Route: 061
     Dates: start: 20191106
  9. ACETAMINOPHEN [Concomitant]
     Active Substance: ACETAMINOPHEN
     Indication: Prophylaxis
     Dosage: 14 MILLILITER, PRN
     Route: 042
     Dates: start: 20191106
  10. TAUROLIDINE CITRATE [Concomitant]
     Indication: Prophylaxis
     Dosage: 1200  UNITS, PRN
     Route: 042
     Dates: start: 20210914
  11. DARBEPOETIN ALFA [Concomitant]
     Active Substance: DARBEPOETIN ALFA
     Indication: Anaemia prophylaxis
     Dosage: 60 MICROGRAM, WEEKLY
     Route: 042
     Dates: start: 20211227
  12. ALBUMIN HUMAN [Concomitant]
     Active Substance: ALBUMIN HUMAN
     Indication: Prophylaxis
     Dosage: 10 GRAM, WEEKLY
     Route: 042
     Dates: start: 20211113
  13. SEVELAMER [Concomitant]
     Active Substance: SEVELAMER
     Indication: Prophylaxis
     Dosage: 800 MILLIGRAM, TID
     Route: 048
     Dates: start: 20211227
  14. SODIUM BICARBONATE [Concomitant]
     Active Substance: SODIUM BICARBONATE
     Indication: Prophylaxis
     Dosage: 5 MILLILITER, TID
     Route: 048
     Dates: start: 20220408
  15. LEVOCARNITINE [Concomitant]
     Active Substance: LEVOCARNITINE
     Indication: Prophylaxis
     Dosage: 600 MILLIGRAM, QD
     Route: 048
     Dates: start: 20220307
  16. TOBRAMYCIN [Concomitant]
     Active Substance: TOBRAMYCIN
     Indication: Prophylaxis
     Dosage: 1 TOPICAL APPLICATION, PRN
     Route: 061
     Dates: start: 20220331
  17. IRON [Concomitant]
     Active Substance: IRON
     Indication: Anaemia
     Dosage: 50 MILLIGRAM, WEEKLY
     Route: 042
     Dates: start: 20220307
  18. CIPROFLOXACIN [Concomitant]
     Active Substance: CIPROFLOXACIN
     Indication: Infection
     Dosage: 160 MILLIGRAM, QD
     Route: 048
     Dates: start: 20220805, end: 20220818
  19. KEPPRA [Concomitant]
     Active Substance: LEVETIRACETAM
     Indication: Seizure
     Dosage: 150 MILLIGRAM, BID
     Route: 048
     Dates: start: 20201201
  20. CLOBAZAM [Concomitant]
     Active Substance: CLOBAZAM
     Indication: Seizure prophylaxis
     Dosage: .5 MILLIGRAM, PRN
     Route: 048
     Dates: start: 20220103

REACTIONS (3)
  - Sepsis [Recovered/Resolved]
  - Hepatosplenomegaly [Not Recovered/Not Resolved]
  - Respiratory distress [Recovered/Resolved]

NARRATIVE: CASE EVENT DATE: 20220829
